FAERS Safety Report 19575355 (Version 3)
Quarter: 2021Q3

REPORT INFORMATION
  Report Type: Spontaneous
  Country: US (occurrence: US)
  Receive Date: 20210719
  Receipt Date: 20210720
  Transmission Date: 20211014
  Serious: No
  Sender: FDA-Public Use
  Company Number: US-BIOGEN-2021BI01030253

PATIENT
  Sex: Female

DRUGS (4)
  1. MYRBETRIQ [Concomitant]
     Active Substance: MIRABEGRON
     Route: 065
  2. VUMERITY [Suspect]
     Active Substance: DIROXIMEL FUMARATE
     Dosage: 1 DAY
     Route: 065
     Dates: start: 20210501
  3. VUMERITY [Suspect]
     Active Substance: DIROXIMEL FUMARATE
     Indication: MULTIPLE SCLEROSIS
     Route: 065
     Dates: start: 20210428
  4. VUMERITY [Suspect]
     Active Substance: DIROXIMEL FUMARATE
     Route: 065
     Dates: start: 202104

REACTIONS (3)
  - Drug ineffective [Unknown]
  - Product storage error [Unknown]
  - Multiple sclerosis relapse [Not Recovered/Not Resolved]
